FAERS Safety Report 10043922 (Version 2)
Quarter: 2014Q1

REPORT INFORMATION
  Report Type: Spontaneous
  Country: US (occurrence: US)
  Receive Date: 20140328
  Receipt Date: 20140328
  Transmission Date: 20141002
  Serious: No
  Sender: FDA-Public Use
  Company Number: US-MYLANLABS-2013S1005049

PATIENT
  Age: 61 Year
  Sex: Female

DRUGS (2)
  1. EMSAM (SELEGILINE TRANSDERMAL SYSTEM) [Suspect]
     Indication: MAJOR DEPRESSION
     Route: 062
     Dates: start: 20121204, end: 2013
  2. ESTROGEN PATCH [Concomitant]

REACTIONS (2)
  - Application site irritation [Recovered/Resolved]
  - Application site dermatitis [Recovered/Resolved]
